FAERS Safety Report 16880828 (Version 1)
Quarter: 2019Q4

REPORT INFORMATION
  Report Type: Spontaneous
  Country: FR (occurrence: FR)
  Receive Date: 20191003
  Receipt Date: 20191003
  Transmission Date: 20200122
  Serious: Yes (Hospitalization, Other)
  Sender: FDA-Public Use
  Company Number: FR-TEVA-FRP11000146

PATIENT
  Age: 69 Year
  Sex: Female

DRUGS (16)
  1. ARAVA [Suspect]
     Active Substance: LEFLUNOMIDE
     Indication: POLYARTHRITIS
     Dosage: 20 MILLIGRAM DAILY;
     Route: 048
  2. DAFALGAN [Concomitant]
     Active Substance: ACETAMINOPHEN
     Indication: RHEUMATOID ARTHRITIS
     Dosage: EVERY 8 HOURS
  3. OROCAL D3 [Concomitant]
     Active Substance: CALCIUM CARBONATE\CHOLECALCIFEROL
     Route: 065
  4. ACTONEL [Suspect]
     Active Substance: RISEDRONATE SODIUM
     Route: 048
     Dates: start: 2006, end: 2009
  5. VALSARTAN. [Suspect]
     Active Substance: VALSARTAN
     Indication: HYPERTENSION
     Dosage: 80 MILLIGRAM
     Route: 048
  6. MABTHERA [Suspect]
     Active Substance: RITUXIMAB
     Indication: POLYARTHRITIS
     Dosage: 1000 MILLIGRAM EVERY 2 WEEKS
     Route: 042
     Dates: end: 20100722
  7. INFLIXIMAB [Concomitant]
     Active Substance: INFLIXIMAB
  8. CORTANCYL [Suspect]
     Active Substance: PREDNISONE
     Indication: POLYARTHRITIS
     Dosage: 5 MILLIGRAM DAILY;
     Route: 048
  9. OESCLIM [Suspect]
     Active Substance: ESTRADIOL
     Indication: OESTROGEN REPLACEMENT THERAPY
     Dosage: 25 MICROGRAM EVERY 0.5 WEEK
     Route: 062
  10. VITAMIN D3 [Suspect]
     Active Substance: CHOLECALCIFEROL
     Dosage: 0..25 [IU]/1
  11. PARACETAMOL [Suspect]
     Active Substance: ACETAMINOPHEN
     Dosage: 3 DOSAGE FORMS DAILY;
     Route: 048
  12. TAREG 80 MG [Concomitant]
     Active Substance: VALSARTAN
     Indication: HYPERTENSION
     Dosage: GELULE
     Route: 048
  13. HYDROXYCHLOROQUINE [Concomitant]
     Active Substance: HYDROXYCHLOROQUINE
  14. ZELTREX [Concomitant]
     Active Substance: VALACYCLOVIR HYDROCHLORIDE
     Indication: ORAL HERPES
     Dosage: 1000 MILLIGRAM DAILY; 500 MG, BID
     Route: 048
     Dates: start: 20100820, end: 20100827
  15. METHOTREXATE. [Suspect]
     Active Substance: METHOTREXATE
     Indication: RHEUMATOID ARTHRITIS
     Route: 065
  16. OFLOCET [Concomitant]
     Active Substance: OFLOXACIN
     Route: 048
     Dates: start: 20100820, end: 20100823

REACTIONS (10)
  - Herpes simplex [Unknown]
  - Periodontitis [Unknown]
  - Gastroenteritis [Unknown]
  - Pain in jaw [Unknown]
  - Acute kidney injury [Unknown]
  - Gingival ulceration [Unknown]
  - Osteonecrosis of jaw [Unknown]
  - Oral pain [Unknown]
  - Necrosis [Unknown]
  - Oral herpes [Recovered/Resolved]

NARRATIVE: CASE EVENT DATE: 201008
